FAERS Safety Report 14928087 (Version 1)
Quarter: 2018Q2

REPORT INFORMATION
  Report Type: Spontaneous
  Country: US (occurrence: US)
  Receive Date: 20180523
  Receipt Date: 20180523
  Transmission Date: 20180711
  Serious: Yes (Other)
  Sender: FDA-Public Use
  Company Number: US-ALKEM LABORATORIES LIMITED-US-ALKEM-2018-03273

PATIENT
  Age: 50 Year
  Sex: Female

DRUGS (1)
  1. LAMOTRIGINE. [Suspect]
     Active Substance: LAMOTRIGINE
     Indication: PRODUCT USED FOR UNKNOWN INDICATION
     Dosage: 3500 MG, UNK
     Route: 065

REACTIONS (4)
  - Overdose [Unknown]
  - Sinus tachycardia [Unknown]
  - Toxicity to various agents [Unknown]
  - Bundle branch block left [Unknown]
